FAERS Safety Report 4858297-X (Version None)
Quarter: 2005Q4

REPORT INFORMATION
  Report Type: 
  Country: None (occurrence: None)
  Receive Date: 20051219
  Receipt Date: 20050328
  Transmission Date: 20060501
  Serious: No
  Sender: FDA-Public Use
  Company Number: US-GLAXOSMITHKLINE-A0551604A

PATIENT
  Sex: Female

DRUGS (2)
  1. NICODERM CQ [Suspect]
     Indication: DRUG USE FOR UNKNOWN INDICATION
     Dates: start: 20050328
  2. NICODERM CQ [Suspect]

REACTIONS (4)
  - DIZZINESS [None]
  - HYPERHIDROSIS [None]
  - PRURITUS [None]
  - RASH PAPULAR [None]
